FAERS Safety Report 4565485-9 (Version None)
Quarter: 2005Q1

REPORT INFORMATION
  Report Type: 
  Country: None (occurrence: None)
  Receive Date: 20050131
  Receipt Date: 20021001
  Transmission Date: 20050727
  Serious: Yes (Other)
  Sender: FDA-Public Use
  Company Number: US-GLAXOSMITHKLINE-A0390052A

PATIENT
  Age: 51 Year
  Sex: Female

DRUGS (2)
  1. PAXIL [Suspect]
     Indication: ANXIETY
     Route: 048
     Dates: start: 19970801, end: 19971201
  2. XANAX [Concomitant]
     Indication: ANXIETY
     Dosage: .5MG AS REQUIRED
     Route: 048

REACTIONS (16)
  - ANGER [None]
  - ANXIETY [None]
  - DEPRESSION [None]
  - DIZZINESS [None]
  - DRUG WITHDRAWAL SYNDROME [None]
  - HYPERACUSIS [None]
  - LOSS OF CONSCIOUSNESS [None]
  - MEMORY IMPAIRMENT [None]
  - NAUSEA [None]
  - NERVOUS SYSTEM DISORDER [None]
  - PAIN [None]
  - PARANOIA [None]
  - SUICIDAL IDEATION [None]
  - TENSION [None]
  - TIC [None]
  - VERTIGO [None]
